FAERS Safety Report 13576785 (Version 1)
Quarter: 2017Q2

REPORT INFORMATION
  Report Type: Spontaneous
  Country: US (occurrence: US)
  Receive Date: 20170524
  Receipt Date: 20170524
  Transmission Date: 20170830
  Serious: No
  Sender: FDA-Public Use
  Company Number: US-009507513-1704USA015106

PATIENT
  Sex: Female
  Weight: 63.95 kg

DRUGS (1)
  1. ETONOGESTREL IMPLANT- UNKNOWN [Suspect]
     Active Substance: ETONOGESTREL
     Dosage: 1 DF, UNK
     Route: 030
     Dates: start: 20150414

REACTIONS (6)
  - Depressed mood [Unknown]
  - Device difficult to use [Recovered/Resolved]
  - Migration of implanted drug [Recovered/Resolved]
  - Vaginal haemorrhage [Unknown]
  - Medical device removal [Recovered/Resolved]
  - Complication associated with device [Recovered/Resolved]

NARRATIVE: CASE EVENT DATE: 2017
